FAERS Safety Report 6786725-1 (Version None)
Quarter: 2010Q2

REPORT INFORMATION
  Report Type: 
  Country: None (occurrence: None)
  Receive Date: 20100623
  Receipt Date: 20100616
  Transmission Date: 20101027
  Serious: Yes (Death, Hospitalization)
  Sender: FDA-Public Use
  Company Number: US-BAYER-201016506NA

PATIENT
  Age: 78 Year
  Sex: Male

DRUGS (4)
  1. AVELOX [Suspect]
     Indication: UPPER RESPIRATORY TRACT INFECTION
     Route: 048
     Dates: start: 20090916, end: 20090929
  2. ACCUPRIL [Concomitant]
  3. ACTUROTEC [Concomitant]
  4. ANDROGEL [Concomitant]

REACTIONS (7)
  - CIRCULATORY COLLAPSE [None]
  - HYPERSENSITIVITY [None]
  - LACRIMATION INCREASED [None]
  - PALLOR [None]
  - SKIN EXFOLIATION [None]
  - SWELLING FACE [None]
  - URTICARIA [None]
